FAERS Safety Report 4521262-6 (Version None)
Quarter: 2004Q4

REPORT INFORMATION
  Report Type: 
  Country: None (occurrence: None)
  Receive Date: 20041208
  Receipt Date: 20041005
  Transmission Date: 20050328
  Serious: Yes (Death)
  Sender: FDA-Public Use
  Company Number: JPKYO-S-20040036

PATIENT
  Age: 79 Year
  Sex: Male

DRUGS (8)
  1. NAVELBINE [Suspect]
     Indication: NON-SMALL CELL LUNG CANCER
     Dosage: 25MGM2 PER DAY
     Route: 042
     Dates: start: 20040917, end: 20040921
  2. PREDONINE [Concomitant]
     Dates: start: 20040501, end: 20040928
  3. GASTER D [Concomitant]
     Dates: start: 20040501, end: 20040928
  4. SLOW-K [Concomitant]
     Dates: start: 20040914, end: 20040928
  5. ALDACTONE [Concomitant]
     Dates: start: 20040914, end: 20040928
  6. DORNER [Concomitant]
     Dates: start: 20040914, end: 20040928
  7. ANPLAG [Concomitant]
     Dates: start: 20040914, end: 20040928
  8. EPADEL [Concomitant]
     Dates: start: 20040914, end: 20040928

REACTIONS (3)
  - LEUKOPENIA [None]
  - PYREXIA [None]
  - SEPTIC SHOCK [None]
